FAERS Safety Report 18506554 (Version 1)
Quarter: 2020Q4

REPORT INFORMATION
  Report Type: Spontaneous
  Country: US (occurrence: US)
  Receive Date: 20201113
  Receipt Date: 20201113
  Transmission Date: 20210114
  Serious: No
  Sender: FDA-Public Use
  Company Number: None

PATIENT
  Age: 42 Year
  Sex: Male

DRUGS (1)
  1. LEVOTHYROXINE. [Suspect]
     Active Substance: LEVOTHYROXINE

REACTIONS (3)
  - Blood thyroid stimulating hormone increased [None]
  - Adverse drug reaction [None]
  - Drug ineffective [None]

NARRATIVE: CASE EVENT DATE: 20201109
